FAERS Safety Report 8021708-5 (Version None)
Quarter: 2012Q1

REPORT INFORMATION
  Report Type: 
  Country: None (occurrence: None)
  Receive Date: 20120104
  Receipt Date: 20111227
  Transmission Date: 20120608
  Serious: Yes (Death, Other)
  Sender: FDA-Public Use
  Company Number: PHHY2011IT113801

PATIENT
  Age: 63 Year
  Sex: Male

DRUGS (2)
  1. ENTACAPONE-LEVODOPA-CARBIDOPA [Suspect]
     Dosage: 600/150/1200 MG, DAILY
  2. LEVODOPA W/BENSERAZIDE/ [Concomitant]
     Dosage: 600/150 MG, DAILY

REACTIONS (8)
  - AMYOTROPHIC LATERAL SCLEROSIS [None]
  - MUSCLE CONTRACTIONS INVOLUNTARY [None]
  - PLEUROTHOTONUS [None]
  - RESPIRATORY FAILURE [None]
  - PERONEAL NERVE PALSY [None]
  - MUSCLE ATROPHY [None]
  - MUSCULAR WEAKNESS [None]
  - POSTURE ABNORMAL [None]
